FAERS Safety Report 18189001 (Version 3)
Quarter: 2020Q4

REPORT INFORMATION
  Report Type: Spontaneous
  Country: US (occurrence: US)
  Receive Date: 20200824
  Receipt Date: 20201102
  Transmission Date: 20210113
  Serious: Yes (Death)
  Sender: FDA-Public Use
  Company Number: US-JNJFOC-20200821540

PATIENT
  Age: 84 Year
  Sex: Male
  Weight: 110.32 kg

DRUGS (1)
  1. XARELTO [Suspect]
     Active Substance: RIVAROXABAN
     Indication: CEREBROVASCULAR ACCIDENT PROPHYLAXIS
     Route: 048
     Dates: start: 20180922, end: 20200802

REACTIONS (3)
  - Type 2 diabetes mellitus [Fatal]
  - Chronic left ventricular failure [Fatal]
  - Chronic kidney disease [Fatal]
